FAERS Safety Report 13270067 (Version 2)
Quarter: 2017Q1

REPORT INFORMATION
  Report Type: Spontaneous
  Country: US (occurrence: US)
  Receive Date: 20170224
  Receipt Date: 20170320
  Transmission Date: 20170428
  Serious: Yes (Other)
  Sender: FDA-Public Use
  Company Number: PHEH2017US005294

PATIENT
  Age: 70 Year
  Sex: Male
  Weight: 72 kg

DRUGS (3)
  1. NORCO [Concomitant]
     Active Substance: ACETAMINOPHEN\HYDROCODONE BITARTRATE
     Indication: PAIN
     Dosage: 1 DF, Q4PRN
     Route: 048
     Dates: start: 20160912, end: 20170207
  2. ZYKADIA [Suspect]
     Active Substance: CERITINIB
     Indication: LUNG CANCER METASTATIC
     Dosage: 750 MG, UNK
     Route: 048
  3. AMBIEN [Concomitant]
     Active Substance: ZOLPIDEM TARTRATE
     Indication: INSOMNIA
     Dosage: 1 DF, QHS PRN
     Route: 048
     Dates: start: 20161217, end: 20170207

REACTIONS (11)
  - Protein total decreased [Unknown]
  - Alanine aminotransferase increased [Unknown]
  - Aspartate aminotransferase increased [Unknown]
  - Blood sodium decreased [Unknown]
  - Blood albumin decreased [Unknown]
  - Blood chloride decreased [Unknown]
  - Blood glucose increased [Unknown]
  - Electrocardiogram QT prolonged [Recovered/Resolved]
  - Albumin globulin ratio decreased [Unknown]
  - Blood calcium decreased [Unknown]
  - Blood alkaline phosphatase increased [Unknown]

NARRATIVE: CASE EVENT DATE: 20170207
